FAERS Safety Report 12685869 (Version 2)
Quarter: 2016Q3

REPORT INFORMATION
  Report Type: Spontaneous
  Country: CO (occurrence: CO)
  Receive Date: 20160825
  Receipt Date: 20160906
  Transmission Date: 20161109
  Serious: Yes (Hospitalization)
  Sender: FDA-Public Use
  Company Number: CO-GE HEALTHCARE MEDICAL DIAGNOSTICS-OMPQ-PR-1608S-1463

PATIENT
  Age: 45 Year
  Sex: Male
  Weight: 72.64 kg

DRUGS (2)
  1. OMNIPAQUE [Suspect]
     Active Substance: IOHEXOL
     Indication: DIAGNOSTIC PROCEDURE
  2. OMNIPAQUE [Suspect]
     Active Substance: IOHEXOL
     Indication: CHEST PAIN
     Route: 042
     Dates: start: 20160718, end: 20160718

REACTIONS (3)
  - Disorientation [Unknown]
  - Hypothermia [Unknown]
  - Rash [Unknown]

NARRATIVE: CASE EVENT DATE: 20160718
